FAERS Safety Report 19381819 (Version 6)
Quarter: 2021Q3

REPORT INFORMATION
  Report Type: Other
  Country: CA (occurrence: CA)
  Receive Date: 20210607
  Receipt Date: 20210809
  Transmission Date: 20211014
  Serious: Yes (Other)
  Sender: FDA-Public Use
  Company Number: CA-ROCHE-2107778

PATIENT
  Age: 72 Year
  Sex: Female

DRUGS (13)
  1. ADALAT [Concomitant]
     Active Substance: NIFEDIPINE
  2. BUDESONIDE. [Concomitant]
     Active Substance: BUDESONIDE
     Route: 045
  3. RISEDRONATE [Concomitant]
     Active Substance: RISEDRONATE SODIUM
  4. RITUXAN [Suspect]
     Active Substance: RITUXIMAB
     Indication: GRANULOMATOSIS WITH POLYANGIITIS
  5. FUROSEMIDE. [Concomitant]
     Active Substance: FUROSEMIDE
  6. GLYBURIDE. [Concomitant]
     Active Substance: GLYBURIDE
  7. SYNTHROID [Concomitant]
     Active Substance: LEVOTHYROXINE SODIUM
  8. PREDNISONE. [Concomitant]
     Active Substance: PREDNISONE
  9. METHYLPREDNISOLONE. [Concomitant]
     Active Substance: METHYLPREDNISOLONE
     Indication: PREMEDICATION
     Route: 042
     Dates: start: 20150303
  10. DIPHENHYDRAMINE HCL [Concomitant]
     Active Substance: DIPHENHYDRAMINE HYDROCHLORIDE
     Indication: PREMEDICATION
     Route: 048
     Dates: start: 20150303
  11. RITUXAN [Suspect]
     Active Substance: RITUXIMAB
     Indication: GRANULOMATOSIS WITH POLYANGIITIS
     Route: 042
     Dates: start: 20150303
  12. LOSARTAN. [Concomitant]
     Active Substance: LOSARTAN
  13. ACETAMINOPHEN. [Concomitant]
     Active Substance: ACETAMINOPHEN
     Indication: PREMEDICATION
     Route: 048
     Dates: start: 20150303

REACTIONS (30)
  - Infusion related reaction [Recovering/Resolving]
  - Vasculitis [Unknown]
  - Productive cough [Unknown]
  - Tachypnoea [Unknown]
  - Heart rate increased [Unknown]
  - Arthralgia [Unknown]
  - Pallor [Unknown]
  - Wheezing [Unknown]
  - Mobility decreased [Unknown]
  - Chronic obstructive pulmonary disease [Not Recovered/Not Resolved]
  - Blood pressure systolic increased [Unknown]
  - Blood pressure increased [Unknown]
  - Feeling hot [Unknown]
  - Oxygen saturation decreased [Unknown]
  - Bronchitis [Not Recovered/Not Resolved]
  - Off label use [Unknown]
  - Asthenia [Not Recovered/Not Resolved]
  - Dyspnoea exertional [Unknown]
  - Respiratory disorder [Unknown]
  - Sputum discoloured [Unknown]
  - Bronchitis [Recovered/Resolved]
  - Asthenia [Unknown]
  - Respiratory rate increased [Unknown]
  - Pyrexia [Unknown]
  - Pneumonia [Recovered/Resolved]
  - Oxygen saturation decreased [Unknown]
  - Heart rate increased [Unknown]
  - Sinusitis [Unknown]
  - Respiratory rate increased [Unknown]
  - Blood pressure increased [Unknown]

NARRATIVE: CASE EVENT DATE: 20150317
